FAERS Safety Report 7921038-3 (Version None)
Quarter: 2011Q4

REPORT INFORMATION
  Report Type: 
  Country: None (occurrence: None)
  Receive Date: 20111117
  Receipt Date: 20111111
  Transmission Date: 20120403
  Serious: Yes (Death)
  Sender: FDA-Public Use
  Company Number: US-PFIZER INC-199967053PHANOV

PATIENT
  Age: 13 Year
  Sex: Female

DRUGS (4)
  1. GENOTROPIN [Suspect]
  2. DESMOPRESSIN ACETATE [Concomitant]
  3. SYNTHROID [Concomitant]
  4. PREDNISONE [Concomitant]

REACTIONS (1)
  - SEPSIS [None]
